FAERS Safety Report 9455172 (Version 1)
Quarter: 2013Q3

REPORT INFORMATION
  Report Type: Spontaneous
  Country: US (occurrence: US)
  Receive Date: 20130813
  Receipt Date: 20130813
  Transmission Date: 20140515
  Serious: No
  Sender: FDA-Public Use
  Company Number: US-BAYER-2013-094658

PATIENT
  Age: 57 Year
  Sex: Female
  Weight: 54 kg

DRUGS (16)
  1. BETASERON [Suspect]
     Dosage: 0.25 MG, QOD
     Route: 058
     Dates: start: 1994, end: 20130717
  2. CELEBREX [Concomitant]
  3. BACLOFEN [Concomitant]
  4. ASPIRIN [Concomitant]
  5. LEXAPRO [Concomitant]
  6. LORCET [Concomitant]
  7. ZANAFLEX [Concomitant]
  8. ALPHA LIPOIC ACID [Concomitant]
  9. PROVIGIL [Concomitant]
  10. VYTORIN [Concomitant]
  11. CALCIUM [Concomitant]
  12. FLAXSEED OIL [Concomitant]
  13. VITAMIN C [Concomitant]
  14. OMEGA-3 [Concomitant]
  15. MULTIVITAMIN [Concomitant]
  16. DIMETHYL FUMARATE [Concomitant]

REACTIONS (1)
  - Drug ineffective [Unknown]
